FAERS Safety Report 24878057 (Version 5)
Quarter: 2025Q2

REPORT INFORMATION
  Report Type: Spontaneous
  Country: BR (occurrence: BR)
  Receive Date: 20250123
  Receipt Date: 20250523
  Transmission Date: 20250717
  Serious: Yes (Hospitalization, Other)
  Sender: ELI LILLY AND COMPANY
  Company Number: BR-ELI_LILLY_AND_COMPANY-BR202412008809

PATIENT
  Age: 73 Year
  Sex: Female

DRUGS (4)
  1. ABEMACICLIB [Suspect]
     Active Substance: ABEMACICLIB
     Indication: Breast cancer metastatic
     Route: 048
     Dates: start: 20241028
  2. ABEMACICLIB [Suspect]
     Active Substance: ABEMACICLIB
     Indication: Lung neoplasm malignant
     Dosage: 50 MG, TID
     Route: 048
     Dates: start: 20241120
  3. ABEMACICLIB [Suspect]
     Active Substance: ABEMACICLIB
     Dosage: 150 MG, BID
     Route: 048
     Dates: start: 20241120
  4. ABEMACICLIB [Suspect]
     Active Substance: ABEMACICLIB
     Route: 048

REACTIONS (20)
  - Oxygen saturation decreased [Recovering/Resolving]
  - Dyspnoea [Unknown]
  - Localised infection [Recovering/Resolving]
  - Pulmonary oedema [Unknown]
  - Malignant neoplasm progression [Unknown]
  - Pain [Unknown]
  - Pain in extremity [Unknown]
  - Weight increased [Unknown]
  - Gait disturbance [Unknown]
  - Swelling [Unknown]
  - Breast atrophy [Unknown]
  - Breast discolouration [Unknown]
  - Breast induration [Recovering/Resolving]
  - Breast haemorrhage [Unknown]
  - Impaired healing [Unknown]
  - Pollakiuria [Unknown]
  - Inappropriate schedule of product administration [Unknown]
  - Gastrointestinal disorder [Unknown]
  - Fatigue [Recovering/Resolving]
  - Diarrhoea [Not Recovered/Not Resolved]
